FAERS Safety Report 9295107 (Version 2)
Quarter: 2014Q1

REPORT INFORMATION
  Report Type: Report from Study
  Country: ES (occurrence: ES)
  Receive Date: 20130517
  Receipt Date: 20140304
  Transmission Date: 20141002
  Serious: Yes (Life-Threatening, Hospitalization)
  Sender: FDA-Public Use
  Company Number: ES-PFIZER INC-2013150051

PATIENT
  Age: 65 Year
  Sex: Male

DRUGS (2)
  1. TRANGOREX [Suspect]
     Indication: ATRIAL FIBRILLATION
     Dosage: 200 MILLIGRAM(S);DAILY
     Route: 048
     Dates: start: 20130111, end: 20130114
  2. BISOPROLOL FUMARATE [Suspect]
     Indication: ATRIAL FIBRILLATION
     Dosage: 10 MILLIGRAM(S);DAILY
     Route: 048
     Dates: start: 201208, end: 20130114

REACTIONS (3)
  - Bradycardia [Recovered/Resolved]
  - Syncope [Recovered/Resolved]
  - Bundle branch block [Recovered/Resolved]
